FAERS Safety Report 25332317 (Version 1)
Quarter: 2025Q2

REPORT INFORMATION
  Report Type: Spontaneous
  Country: US (occurrence: US)
  Receive Date: 20250519
  Receipt Date: 20250519
  Transmission Date: 20250717
  Serious: No
  Sender: MYLAN
  Company Number: US-MYLANLABS-2025M1039465

PATIENT
  Sex: Female

DRUGS (4)
  1. BREYNA [Suspect]
     Active Substance: BUDESONIDE\FORMOTEROL FUMARATE
     Indication: Product used for unknown indication
     Dosage: 160 PER 4.5 MICROGRAM, BID (TWO TIMES A DAY)
     Dates: start: 2024
  2. BREYNA [Suspect]
     Active Substance: BUDESONIDE\FORMOTEROL FUMARATE
     Dosage: 160 PER 4.5 MICROGRAM, BID (TWO TIMES A DAY)
     Route: 065
     Dates: start: 2024
  3. BREYNA [Suspect]
     Active Substance: BUDESONIDE\FORMOTEROL FUMARATE
     Dosage: 160 PER 4.5 MICROGRAM, BID (TWO TIMES A DAY)
     Route: 065
     Dates: start: 2024
  4. BREYNA [Suspect]
     Active Substance: BUDESONIDE\FORMOTEROL FUMARATE
     Dosage: 160 PER 4.5 MICROGRAM, BID (TWO TIMES A DAY)
     Dates: start: 2024

REACTIONS (3)
  - Incorrect dose administered [Unknown]
  - Product substitution issue [Unknown]
  - Device malfunction [Unknown]
